FAERS Safety Report 9434837 (Version 1)
Quarter: 2013Q3

REPORT INFORMATION
  Report Type: Spontaneous
  Country: BR (occurrence: BR)
  Receive Date: 20130801
  Receipt Date: 20130801
  Transmission Date: 20140515
  Serious: Yes (Other)
  Sender: FDA-Public Use
  Company Number: BR-JNJFOC-20130715935

PATIENT
  Age: 6 Year
  Sex: Female

DRUGS (1)
  1. INFLIXIMAB, RECOMBINANT [Suspect]
     Indication: POLYCHONDRITIS
     Route: 042

REACTIONS (2)
  - Infusion related reaction [Unknown]
  - Off label use [Unknown]
